FAERS Safety Report 9167608 (Version 6)
Quarter: 2013Q3

REPORT INFORMATION
  Report Type: Report from Study
  Country: DE (occurrence: DE)
  Receive Date: 20130318
  Receipt Date: 20130729
  Transmission Date: 20140515
  Serious: Yes (Hospitalization)
  Sender: FDA-Public Use
  Company Number: DE-JNJFOC-20130305810

PATIENT
  Age: 16 Year
  Sex: Male
  Weight: 49.5 kg

DRUGS (4)
  1. REMICADE [Suspect]
     Indication: CROHN^S DISEASE
     Route: 042
     Dates: start: 20000518, end: 20110725
  2. HUMIRA [Concomitant]
     Route: 065
     Dates: start: 20110811
  3. 5-ASA [Concomitant]
     Route: 048
  4. ANTIBIOTICS [Concomitant]
     Indication: CROHN^S DISEASE
     Route: 065

REACTIONS (1)
  - Gastroenteritis viral [Recovered/Resolved]
